FAERS Safety Report 11628033 (Version 1)
Quarter: 2015Q4

REPORT INFORMATION
  Report Type: Spontaneous
  Country: US (occurrence: US)
  Receive Date: 20151014
  Receipt Date: 20151014
  Transmission Date: 20160304
  Serious: Yes (Other)
  Sender: FDA-Public Use
  Company Number: US-SUN PHARMACEUTICAL INDUSTRIES LTD-2015US-104553

PATIENT
  Age: 59 Year
  Sex: Female

DRUGS (8)
  1. DULOXETINE. [Suspect]
     Active Substance: DULOXETINE
     Indication: DEPRESSION
     Dosage: 60 MG, QD
     Route: 065
  2. FENTANYL. [Interacting]
     Active Substance: FENTANYL
     Indication: CHEST PAIN
     Dosage: 50 ?G IN TWO DIVIDED DOSES
     Route: 042
  3. TRAZODONE [Interacting]
     Active Substance: TRAZODONE HYDROCHLORIDE
     Indication: INSOMNIA
     Dosage: 100 MG, QD (100 MG AT BEDTIME)
     Route: 065
  4. SIMVASTATIN. [Concomitant]
     Active Substance: SIMVASTATIN
     Indication: HYPERLIPIDAEMIA
     Dosage: 10 MG, QD
     Route: 065
  5. FENTANYL. [Interacting]
     Active Substance: FENTANYL
     Indication: ABDOMINAL PAIN
     Dosage: 50 ?G, SINGLE
     Route: 042
  6. LANSOPRAZOLE. [Concomitant]
     Active Substance: LANSOPRAZOLE
     Indication: DYSPEPSIA
     Dosage: 30 MG, QD (30 MG EVERY MORNING)
     Route: 065
  7. VALSARTAN. [Concomitant]
     Active Substance: VALSARTAN
     Indication: HYPERTENSION
     Dosage: 160 MG, QD
     Route: 065
  8. LORAZEPAM. [Concomitant]
     Active Substance: LORAZEPAM
     Indication: ANXIETY
     Dosage: UNK, PRN
     Route: 065

REACTIONS (2)
  - Drug interaction [Unknown]
  - Serotonin syndrome [Recovered/Resolved]
